FAERS Safety Report 4848019-0 (Version None)
Quarter: 2005Q4

REPORT INFORMATION
  Report Type: 
  Country: None (occurrence: None)
  Receive Date: 20051206
  Receipt Date: 20051117
  Transmission Date: 20060501
  Serious: Yes (Hospitalization)
  Sender: FDA-Public Use
  Company Number: RO200511001208

PATIENT
  Age: 7 Year
  Sex: Male
  Weight: 25 kg

DRUGS (2)
  1. STRATTERA [Suspect]
     Indication: ATTENTION DEFICIT/HYPERACTIVITY DISORDER
     Dosage: 10 MG,DAILY (1/D),ORAL
     Route: 048
     Dates: start: 20051006, end: 20051110
  2. TRANXENE [Concomitant]

REACTIONS (1)
  - HEPATITIS CHRONIC ACTIVE [None]
